FAERS Safety Report 9458631 (Version 1)
Quarter: 2013Q3

REPORT INFORMATION
  Report Type: Report from Study
  Country: US (occurrence: US)
  Receive Date: 20130814
  Receipt Date: 20130814
  Transmission Date: 20140515
  Serious: Yes (Hospitalization)
  Sender: FDA-Public Use
  Company Number: US-BAYER-2013-088673

PATIENT
  Age: 53 Year
  Sex: Female

DRUGS (1)
  1. STIVARGA [Suspect]
     Indication: COLON CANCER
     Dosage: DAILY DOSE 160 MG
     Route: 048

REACTIONS (6)
  - Cerebrovascular accident [None]
  - Skin exfoliation [None]
  - Abdominal pain [None]
  - Decreased appetite [None]
  - Fatigue [None]
  - Back pain [None]
